FAERS Safety Report 20385156 (Version 1)
Quarter: 2022Q1

REPORT INFORMATION
  Report Type: Spontaneous
  Country: GB (occurrence: GB)
  Receive Date: 20220127
  Receipt Date: 20220127
  Transmission Date: 20220423
  Serious: Yes (Disabling, Other)
  Sender: FDA-Public Use
  Company Number: None

PATIENT
  Sex: Female
  Weight: 69 kg

DRUGS (3)
  1. BOTOX [Suspect]
     Active Substance: ONABOTULINUMTOXINA
     Indication: Ill-defined disorder
     Dosage: UNK UNK, SINGLE
     Route: 051
     Dates: start: 20220119, end: 20220119
  2. BOTOX [Suspect]
     Active Substance: ONABOTULINUMTOXINA
     Dosage: UNK UNK, SINGLE
     Route: 051
     Dates: start: 20220119, end: 20220119
  3. TARGINACT PROLONGED RELEASE [Concomitant]
     Indication: Ill-defined disorder

REACTIONS (5)
  - Neuralgia [Not Recovered/Not Resolved]
  - Medication error [Unknown]
  - Pain [Not Recovered/Not Resolved]
  - Hypoaesthesia [Not Recovered/Not Resolved]
  - Off label use [Unknown]

NARRATIVE: CASE EVENT DATE: 20220119
